FAERS Safety Report 8436186-1 (Version None)
Quarter: 2012Q2

REPORT INFORMATION
  Report Type: 
  Country: None (occurrence: None)
  Receive Date: 20120614
  Receipt Date: 20120613
  Transmission Date: 20120825
  Serious: Yes (Other)
  Sender: FDA-Public Use
  Company Number: US-PFIZER INC-2012131388

PATIENT
  Sex: Female

DRUGS (7)
  1. METOPROLOL TARTRATE [Suspect]
     Dosage: 50 MG
     Route: 048
     Dates: start: 20070801, end: 20070801
  2. ATENOLOL [Suspect]
     Dosage: 25 MG, UNK
     Route: 048
     Dates: start: 20080501, end: 20080501
  3. TOPROL-XL [Suspect]
     Indication: HYPERTENSION
     Dosage: 50 MG, 2X/DAY
     Route: 048
  4. HYDROCHLOROTHIAZIDE AND LISINOPRIL [Suspect]
     Dosage: 10/12.5 MG
     Route: 048
     Dates: start: 20070824, end: 20080501
  5. NIFEDIPINE [Suspect]
     Dosage: 30 MG
     Route: 065
     Dates: start: 20080530
  6. TOPROL-XL [Suspect]
     Dosage: 100 MG, 2X/DAY
     Route: 048
  7. COREG [Suspect]
     Dosage: 20 MG
     Route: 065
     Dates: start: 20080101

REACTIONS (14)
  - FATIGUE [None]
  - PARAESTHESIA [None]
  - CONSTIPATION [None]
  - CONFUSIONAL STATE [None]
  - HYPERTENSION [None]
  - MUSCLE SPASMS [None]
  - HYPOAESTHESIA [None]
  - DRUG INEFFECTIVE [None]
  - EYE HAEMORRHAGE [None]
  - MALAISE [None]
  - ASTHENIA [None]
  - DIZZINESS [None]
  - ABDOMINAL DISCOMFORT [None]
  - MUSCULAR WEAKNESS [None]
